FAERS Safety Report 6156895-7 (Version None)
Quarter: 2009Q2

REPORT INFORMATION
  Report Type: 
  Country: None (occurrence: None)
  Receive Date: 20090416
  Receipt Date: 20090406
  Transmission Date: 20091009
  Serious: Yes (Hospitalization, Other)
  Sender: FDA-Public Use
  Company Number: JP-ASTRAZENECA-2009SE01443

PATIENT
  Age: 76 Year
  Sex: Female
  Weight: 75 kg

DRUGS (5)
  1. PARAPRES [Suspect]
     Indication: HYPERTENSION
     Route: 048
  2. PARAPRES [Suspect]
     Route: 048
     Dates: start: 20090210
  3. FUROSEMIDE [Concomitant]
     Route: 048
  4. BISOPROLOL [Concomitant]
     Route: 048
  5. ZOLPIDEM TARTRATE [Concomitant]
     Route: 048

REACTIONS (5)
  - ANGIOEDEMA [None]
  - ECZEMA ASTEATOTIC [None]
  - EOSINOPHILIA [None]
  - OEDEMA PERIPHERAL [None]
  - RENAL FAILURE [None]
